FAERS Safety Report 25043959 (Version 2)
Quarter: 2025Q1

REPORT INFORMATION
  Report Type: Spontaneous
  Country: IT (occurrence: IT)
  Receive Date: 20250306
  Receipt Date: 20250313
  Transmission Date: 20250409
  Serious: Yes (Other)
  Sender: ALKEM
  Company Number: AE-ALKEM LABORATORIES LIMITED-IT-ALKEM-2025-02312

PATIENT
  Age: 44 Year
  Sex: Male

DRUGS (1)
  1. FINGOLIMOD [Suspect]
     Active Substance: FINGOLIMOD
     Indication: Relapsing-remitting multiple sclerosis
     Dosage: QD (ORAL CAPSULE ONCE DAILY) (GILENYA, NOVARTIS)
     Route: 048

REACTIONS (1)
  - Central serous chorioretinopathy [Recovered/Resolved]
